FAERS Safety Report 8980851 (Version 1)
Quarter: 2012Q4

REPORT INFORMATION
  Report Type: 
  Country: JP (occurrence: JP)
  Receive Date: 20121221
  Receipt Date: 20121221
  Transmission Date: 20130627
  Serious: Yes (Other)
  Sender: FDA-Public Use
  Company Number: JP-UCBSA-073530

PATIENT
  Sex: Male

DRUGS (1)
  1. E KEPPRA [Suspect]
     Indication: EPILEPSY
     Dosage: STRENGTH: 250 MG
     Route: 048
     Dates: start: 201208, end: 201209

REACTIONS (2)
  - Psychopathic personality [Recovered/Resolved]
  - Aggression [Recovered/Resolved]
